FAERS Safety Report 8451223-6 (Version None)
Quarter: 2012Q2

REPORT INFORMATION
  Report Type: 
  Country: None (occurrence: None)
  Receive Date: 20120620
  Receipt Date: 20120302
  Transmission Date: 20120825
  Serious: No
  Sender: FDA-Public Use
  Company Number: US-VERTEX PHARMACEUTICALS INC.-AE-2012-000636

PATIENT

DRUGS (11)
  1. INCIVEK [Suspect]
     Indication: HEPATITIS C
     Route: 048
     Dates: start: 20111201
  2. FISH OIL [Concomitant]
  3. ZOFRAN [Concomitant]
  4. ULTRAM [Concomitant]
  5. PREMARIN [Concomitant]
  6. PRILOSEC [Concomitant]
  7. PEGINTERFERON ALFA-2A [Concomitant]
     Indication: HEPATITIS C
     Dates: start: 20111201
  8. RIBAVIRIN [Concomitant]
     Indication: HEPATITIS C
     Dates: start: 20111201
  9. DIOVAN [Concomitant]
  10. VITAMIN D [Concomitant]
  11. CELEXA [Concomitant]

REACTIONS (1)
  - BLISTER [None]
